FAERS Safety Report 5651663-4 (Version None)
Quarter: 2008Q1

REPORT INFORMATION
  Report Type: 
  Country: None (occurrence: None)
  Receive Date: 20080131
  Receipt Date: 20071105
  Transmission Date: 20080703
  Serious: No
  Sender: FDA-Public Use
  Company Number: US200711001200

PATIENT
  Age: 55 Year
  Sex: Female

DRUGS (4)
  1. BYETTA [Suspect]
     Indication: TYPE 2 DIABETES MELLITUS
     Dosage: 5 UG, 2/D, SUBCUTANEOUS; 10 UG, 2/D; SUBCUTANEOUS
     Route: 058
     Dates: start: 20070901, end: 20070901
  2. BYETTA [Suspect]
     Indication: TYPE 2 DIABETES MELLITUS
     Dosage: 5 UG, 2/D, SUBCUTANEOUS; 10 UG, 2/D; SUBCUTANEOUS
     Route: 058
     Dates: start: 20071031
  3. EXENATIDE 5MCG PEN, DISPOSABLE DEVICE, (EXENATIDE PEN (5MCG)) PEN,DISP [Concomitant]
  4. METFORMIN HCL [Concomitant]

REACTIONS (3)
  - DECREASED APPETITE [None]
  - EARLY SATIETY [None]
  - STOMACH DISCOMFORT [None]
